FAERS Safety Report 25591921 (Version 4)
Quarter: 2025Q3

REPORT INFORMATION
  Report Type: Report from Study
  Country: CN (occurrence: CN)
  Receive Date: 20250722
  Receipt Date: 20250828
  Transmission Date: 20251021
  Serious: Yes (Death, Life-Threatening, Other)
  Sender: Vantive US Healthcare
  Company Number: CN-VANTIVE-2025VAN003253

PATIENT
  Age: 25 Year
  Sex: Female
  Weight: 47 kg

DRUGS (6)
  1. DEXTROSE\LACTIC ACID\MAGNESIUM CL\POTASSIUM CL\SODIUM BICARBONATE\SODI [Suspect]
     Active Substance: DEXTROSE\LACTIC ACID\MAGNESIUM CHLORIDE\POTASSIUM CHLORIDE\SODIUM BICARBONATE\SODIUM CHLORIDE
     Indication: Acidosis
     Route: 041
     Dates: start: 20250708, end: 20250709
  2. DEXTROSE\LACTIC ACID\MAGNESIUM CL\POTASSIUM CL\SODIUM BICARBONATE\SODI [Suspect]
     Active Substance: DEXTROSE\LACTIC ACID\MAGNESIUM CHLORIDE\POTASSIUM CHLORIDE\SODIUM BICARBONATE\SODIUM CHLORIDE
     Route: 041
     Dates: start: 20250708, end: 20250709
  3. UNSPECIFIED INGREDIENT [Suspect]
     Active Substance: UNSPECIFIED INGREDIENT
     Route: 065
  4. HEPARIN SODIUM [Concomitant]
     Active Substance: HEPARIN SODIUM
     Indication: Anticoagulant therapy
     Route: 065
     Dates: start: 20250708, end: 20250708
  5. HEPARIN SODIUM [Concomitant]
     Active Substance: HEPARIN SODIUM
     Route: 065
     Dates: start: 20250708, end: 20250708
  6. HEPARIN SODIUM [Concomitant]
     Active Substance: HEPARIN SODIUM
     Route: 065
     Dates: start: 20250708, end: 20250709

REACTIONS (1)
  - Gangrene [Fatal]

NARRATIVE: CASE EVENT DATE: 20250708
